FAERS Safety Report 4994970-0 (Version None)
Quarter: 2006Q2

REPORT INFORMATION
  Report Type: 
  Country: None (occurrence: None)
  Receive Date: 20060503
  Receipt Date: 20060421
  Transmission Date: 20061013
  Serious: Yes (Hospitalization)
  Sender: FDA-Public Use
  Company Number: S06-GER-01589-01

PATIENT
  Age: 37 Year
  Sex: Male
  Weight: 91 kg

DRUGS (7)
  1. CIPRAMIL (CITALOPRAM HYDROBROMIDE) [Suspect]
     Indication: AGORAPHOBIA
     Dosage: 20 MG QD PO
     Route: 048
     Dates: start: 20060201, end: 20060320
  2. CIPRAMIL (CITALOPRAM HYDROBROMIDE) [Suspect]
     Indication: PANIC ATTACK
     Dosage: 20 MG QD PO
     Route: 048
     Dates: start: 20060201, end: 20060320
  3. CIPRAMIL (CITALOPRAM HYDROBROMIDE) [Suspect]
     Indication: AGORAPHOBIA
     Dosage: 10 MG QD PO
     Route: 048
     Dates: start: 20060324
  4. CIPRAMIL (CITALOPRAM HYDROBROMIDE) [Suspect]
     Indication: PANIC ATTACK
     Dosage: 10 MG QD PO
     Route: 048
     Dates: start: 20060324
  5. DOXEPIN HCL [Concomitant]
  6. TRUXAL (CHLORPROTHIXENE HYDROCHLORIDE) [Concomitant]
  7. DONEURIN (DOXEPIN HYDROCHLORIDE) [Concomitant]

REACTIONS (1)
  - SUPRAVENTRICULAR TACHYCARDIA [None]
